FAERS Safety Report 6058406-3 (Version None)
Quarter: 2009Q1

REPORT INFORMATION
  Report Type: 
  Country: None (occurrence: None)
  Receive Date: 20090130
  Receipt Date: 20090120
  Transmission Date: 20090719
  Serious: Yes (Hospitalization)
  Sender: FDA-Public Use
  Company Number: BR-ABBOTT-08P-020-0489958-00

PATIENT
  Age: 78 Year
  Sex: Female

DRUGS (2)
  1. HUMIRA [Suspect]
     Indication: RHEUMATOID ARTHRITIS
     Route: 058
     Dates: start: 20070501, end: 20080901
  2. HUMIRA [Suspect]
     Dates: start: 20081001

REACTIONS (4)
  - ABSCESS [None]
  - ARTHRITIS [None]
  - POLYARTHRITIS [None]
  - RHEUMATOID NODULE [None]
